FAERS Safety Report 8282902-1 (Version None)
Quarter: 2012Q2

REPORT INFORMATION
  Report Type: 
  Country: None (occurrence: None)
  Receive Date: 20120413
  Receipt Date: 20120411
  Transmission Date: 20120825
  Serious: Yes (Death)
  Sender: FDA-Public Use
  Company Number: FR-B.I. PHARMACEUTICALS,INC./RIDGEFIELD-2012-FF-00445FF

PATIENT
  Age: 84 Year
  Sex: Male

DRUGS (3)
  1. MICARDIS [Concomitant]
     Route: 048
  2. AMLODIPINE [Concomitant]
     Route: 048
  3. TWYNSTA [Suspect]
     Route: 048

REACTIONS (4)
  - THROMBOCYTOPENIA [None]
  - EOSINOPHILIA [None]
  - DEATH [None]
  - IMMUNE SYSTEM DISORDER [None]
